FAERS Safety Report 18272357 (Version 2)
Quarter: 2020Q4

REPORT INFORMATION
  Report Type: Spontaneous
  Country: JP (occurrence: JP)
  Receive Date: 20200916
  Receipt Date: 20201006
  Transmission Date: 20210113
  Serious: Yes (Other)
  Sender: FDA-Public Use
  Company Number: JP-SUNOVION-2020DSP011093

PATIENT
  Age: 5 Decade
  Sex: Female

DRUGS (2)
  1. LATUDA [Suspect]
     Active Substance: LURASIDONE HYDROCHLORIDE
     Indication: BIPOLAR DISORDER
     Dosage: 20 MG, QD
     Route: 048
  2. LONASEN [Suspect]
     Active Substance: BLONANSERIN
     Indication: SCHIZOPHRENIA
     Dosage: 20 MG, QD
     Route: 062

REACTIONS (2)
  - Bipolar disorder [Unknown]
  - Application site pruritus [Recovered/Resolved]

NARRATIVE: CASE EVENT DATE: 202009
